FAERS Safety Report 14610216 (Version 2)
Quarter: 2018Q2

REPORT INFORMATION
  Report Type: Spontaneous
  Country: GB (occurrence: FR)
  Receive Date: 20180307
  Receipt Date: 20180423
  Transmission Date: 20180711
  Serious: Yes (Hospitalization)
  Sender: FDA-Public Use
  Company Number: FR-FRESENIUS KABI-FK201802475

PATIENT
  Age: 85 Year
  Sex: Female
  Weight: 59.9 kg

DRUGS (5)
  1. ZYLORIC 300 MG, TABLET [Suspect]
     Active Substance: ALLOPURINOL
     Indication: PROPHYLAXIS
     Route: 048
     Dates: start: 20180102
  2. LASILIX 40 MG, SCORED TABLET [Concomitant]
     Indication: OEDEMA
     Route: 048
     Dates: start: 20180109, end: 20180122
  3. VANCOMYCIN (MANUFACTURER UNKNOWN) [Suspect]
     Active Substance: VANCOMYCIN
     Indication: PYREXIA
     Route: 042
     Dates: start: 20180104, end: 20180122
  4. AMBISOME [Suspect]
     Active Substance: AMPHOTERICIN B
     Indication: PYREXIA
     Route: 042
     Dates: start: 20180108, end: 20180115
  5. FORTUM 2 G, POWDER FOR INJECTABLE SOLUTION [Suspect]
     Active Substance: CEFTAZIDIME
     Indication: PYREXIA
     Route: 042
     Dates: start: 20180104, end: 20180124

REACTIONS (1)
  - Acute kidney injury [Recovered/Resolved with Sequelae]

NARRATIVE: CASE EVENT DATE: 20180118
